FAERS Safety Report 5787951-0 (Version None)
Quarter: 2008Q2

REPORT INFORMATION
  Report Type: 
  Country: None (occurrence: None)
  Receive Date: 20080625
  Receipt Date: 20080620
  Transmission Date: 20081010
  Serious: Yes (Hospitalization)
  Sender: FDA-Public Use
  Company Number: B0526340A

PATIENT
  Age: 40 Year
  Sex: Male

DRUGS (3)
  1. TELZIR [Suspect]
     Indication: HIV INFECTION
     Dosage: 12G PER DAY
     Route: 048
     Dates: start: 20080422, end: 20080422
  2. NORVIR [Suspect]
     Indication: HIV INFECTION
     Dosage: 2G PER DAY
     Route: 048
     Dates: start: 20080422, end: 20080422
  3. TRUVADA [Suspect]
     Indication: HIV INFECTION
     Route: 048
     Dates: start: 20080422, end: 20080422

REACTIONS (2)
  - HEPATOTOXICITY [None]
  - SUICIDE ATTEMPT [None]
